FAERS Safety Report 5319314-6 (Version None)
Quarter: 2007Q2

REPORT INFORMATION
  Report Type: 
  Country: None (occurrence: None)
  Receive Date: 20070508
  Receipt Date: 20070430
  Transmission Date: 20071010
  Serious: No
  Sender: FDA-Public Use
  Company Number: US-ELI_LILLY_AND_COMPANY-US200704001129

PATIENT
  Sex: Male

DRUGS (4)
  1. BYETTA [Suspect]
     Indication: DIABETES MELLITUS NON-INSULIN-DEPENDENT
     Dosage: 5 UG, 2/D
     Route: 058
     Dates: start: 20060505, end: 20060605
  2. BYETTA [Suspect]
     Dosage: 10 UG, 2/D
     Route: 058
     Dates: start: 20060605, end: 20070123
  3. METFORMIN HCL [Concomitant]
     Dosage: UNK, UNKNOWN
  4. AMARYL [Concomitant]
     Dosage: UNK, UNKNOWN

REACTIONS (1)
  - HYPERSENSITIVITY [None]
